FAERS Safety Report 11723590 (Version 1)
Quarter: 2015Q4

REPORT INFORMATION
  Report Type: Spontaneous
  Country: US (occurrence: US)
  Receive Date: 20151111
  Receipt Date: 20151111
  Transmission Date: 20160304
  Serious: No
  Sender: FDA-Public Use
  Company Number: US-ENDO PHARMACEUTICALS INC.-2015-002951

PATIENT
  Sex: Male

DRUGS (1)
  1. XIAFLEX [Suspect]
     Active Substance: COLLAGENASE CLOSTRIDIUM HISTOLYTICUM
     Indication: PEYRONIE^S DISEASE
     Dosage: ^INJECTED .9, BASICALLY USED THE ENTIRE VIAL^
     Route: 065
     Dates: start: 20150916

REACTIONS (2)
  - Incorrect dose administered [Recovered/Resolved]
  - Penile contusion [Unknown]

NARRATIVE: CASE EVENT DATE: 20150916
